FAERS Safety Report 4453415-X (Version None)
Quarter: 2004Q3

REPORT INFORMATION
  Report Type: 
  Country: None (occurrence: None)
  Receive Date: 20040920
  Receipt Date: 20040907
  Transmission Date: 20050211
  Serious: Yes (Other)
  Sender: FDA-Public Use
  Company Number: PHHO2004CA12741

PATIENT
  Age: 30 Year
  Sex: Female

DRUGS (4)
  1. ZELNORM [Suspect]
     Dosage: UNK, PRN
     Route: 048
     Dates: start: 20031123
  2. COLACE [Concomitant]
     Dosage: 100 MG, BID
     Dates: start: 19970403
  3. SENOKOT [Concomitant]
     Dosage: 9 MG, BID
     Dates: start: 19970403
  4. LACTULOSE [Concomitant]

REACTIONS (4)
  - ABDOMINAL PAIN UPPER [None]
  - CONSTIPATION [None]
  - DEPRESSION [None]
  - WEIGHT INCREASED [None]
